FAERS Safety Report 10046129 (Version 1)
Quarter: 2014Q1

REPORT INFORMATION
  Report Type: Spontaneous
  Country: US (occurrence: US)
  Receive Date: 20140331
  Receipt Date: 20140331
  Transmission Date: 20141002
  Serious: No
  Sender: FDA-Public Use
  Company Number: US-BIOGENIDEC-2014BI027245

PATIENT
  Age: 48 Year
  Sex: Female

DRUGS (1)
  1. AVONEX [Suspect]
     Indication: MULTIPLE SCLEROSIS
     Route: 030
     Dates: start: 20020118, end: 20020418

REACTIONS (7)
  - Abdominal pain upper [Unknown]
  - Back pain [Unknown]
  - Multiple sclerosis [Unknown]
  - Depression [Unknown]
  - Headache [Unknown]
  - Malaise [Recovered/Resolved]
  - Neck pain [Unknown]
